FAERS Safety Report 18800026 (Version 2)
Quarter: 2021Q1

REPORT INFORMATION
  Report Type: Spontaneous
  Country: CA (occurrence: CA)
  Receive Date: 20210128
  Receipt Date: 20210129
  Transmission Date: 20210419
  Serious: Yes (Death, Hospitalization, Other)
  Sender: FDA-Public Use
  Company Number: CA-GRANULES-CA-2021GRALIT00051

PATIENT
  Age: 64 Year
  Sex: Female

DRUGS (5)
  1. BICARBONATE [Interacting]
     Active Substance: SODIUM BICARBONATE
     Indication: ACUTE HEPATIC FAILURE
  2. ACETAMINOPHEN. [Suspect]
     Active Substance: ACETAMINOPHEN
     Indication: PRODUCT USED FOR UNKNOWN INDICATION
     Route: 048
  3. ACETYLCYSTEINE. [Interacting]
     Active Substance: ACETYLCYSTEINE
     Indication: METABOLIC ACIDOSIS
     Route: 065
  4. BICARBONATE [Interacting]
     Active Substance: SODIUM BICARBONATE
     Indication: METABOLIC ACIDOSIS
     Route: 065
  5. ACETYLCYSTEINE. [Interacting]
     Active Substance: ACETYLCYSTEINE
     Indication: ACUTE HEPATIC FAILURE

REACTIONS (9)
  - Hypercalcaemia [Fatal]
  - Hepatic encephalopathy [Fatal]
  - Haemodynamic instability [Fatal]
  - Acute hepatic failure [Fatal]
  - Hypernatraemia [Fatal]
  - Metabolic acidosis [Fatal]
  - Confusional state [Fatal]
  - Oliguria [Fatal]
  - Intentional overdose [Fatal]
